FAERS Safety Report 8958854 (Version 1)
Quarter: 2012Q4

REPORT INFORMATION
  Report Type: 
  Country: GB (occurrence: GB)
  Receive Date: 20121212
  Receipt Date: 20121212
  Transmission Date: 20130627
  Serious: Yes (Other)
  Sender: FDA-Public Use
  Company Number: GB-ASTELLAS-2012EU010599

PATIENT
  Age: 65 Year
  Sex: Female
  Weight: 59.7 kg

DRUGS (2)
  1. VESICARE [Suspect]
     Indication: POLLAKIURIA
     Dosage: 5 mg, UID/QD
     Route: 048
     Dates: start: 20120706
  2. RANTIDINE [Concomitant]
     Indication: DYSPEPSIA
     Dosage: 150 mg, bid
     Route: 048
     Dates: start: 2011

REACTIONS (2)
  - Somnolence [Recovering/Resolving]
  - Eye pruritus [Recovering/Resolving]
